FAERS Safety Report 9132476 (Version 1)
Quarter: 2013Q1

REPORT INFORMATION
  Report Type: Spontaneous
  Country: ES (occurrence: ES)
  Receive Date: 20130301
  Receipt Date: 20130301
  Transmission Date: 20140127
  Serious: Yes (Other)
  Sender: FDA-Public Use
  Company Number: ES-GLAXOSMITHKLINE-B0806520A

PATIENT
  Sex: Female
  Weight: 55 kg

DRUGS (4)
  1. MALARONE [Suspect]
     Indication: PROPHYLAXIS
     Route: 048
     Dates: start: 20120520, end: 20120606
  2. YELLOW FEVER VACCINE [Suspect]
     Indication: PROPHYLAXIS
     Route: 030
     Dates: start: 20120419
  3. HEPATITIS VACCINE NOS [Suspect]
     Indication: PROPHYLAXIS
     Route: 030
     Dates: start: 20120419
  4. TYPHUS VACCINE [Suspect]
     Indication: PROPHYLAXIS
     Route: 030
     Dates: start: 20120419

REACTIONS (2)
  - Abortion induced [Unknown]
  - Exposure during pregnancy [Unknown]
